FAERS Safety Report 10029597 (Version 1)
Quarter: 2014Q1

REPORT INFORMATION
  Report Type: Spontaneous
  Country: US (occurrence: None)
  Receive Date: 20140320
  Receipt Date: 20140320
  Transmission Date: 20141002
  Serious: Yes (Other)
  Sender: FDA-Public Use
  Company Number: None

PATIENT
  Age: 41 Year
  Sex: Female
  Weight: 57.15 kg

DRUGS (1)
  1. DULOXETINE 60 MG CITRON DISTRIBUTED MADE IN INDIA [Suspect]
     Indication: FIBROMYALGIA
     Dosage: 1 CAPSULE ONCE A DAY ORAL
     Route: 048
     Dates: start: 20140131, end: 20140214

REACTIONS (4)
  - Nausea [None]
  - Drug ineffective [None]
  - Loss of libido [None]
  - Product substitution issue [None]
